FAERS Safety Report 16337280 (Version 1)
Quarter: 2019Q2

REPORT INFORMATION
  Report Type: Spontaneous
  Country: US (occurrence: US)
  Receive Date: 20190520
  Receipt Date: 20190520
  Transmission Date: 20190711
  Serious: Yes (Other)
  Sender: FDA-Public Use
  Company Number: None

PATIENT
  Sex: Female
  Weight: 78.75 kg

DRUGS (1)
  1. COLGATE TOTAL SF CLEAN MINT [Suspect]
     Active Substance: STANNOUS FLUORIDE
     Dosage: ?          OTHER STRENGTH:OUNCES;?

REACTIONS (4)
  - Dysgeusia [None]
  - Product packaging confusion [None]
  - Application site pain [None]
  - Application site hypoaesthesia [None]
